FAERS Safety Report 8593630 (Version 2)
Quarter: 2012Q4

REPORT INFORMATION
  Report Type: 
  Country: US (occurrence: US)
  Receive Date: 20120604
  Receipt Date: 20120926
  Transmission Date: 20130627
  Serious: Yes (Hospitalization)
  Sender: FDA-Public Use
  Company Number: US-BAYER-2012-053743

PATIENT
  Age: 36 Year
  Sex: Female
  Weight: 55.96 kg

DRUGS (14)
  1. YASMIN [Suspect]
     Indication: CONTRACEPTION
     Dosage: UNK
     Dates: start: 200412, end: 20080528
  2. CEFDINIR [Concomitant]
     Indication: ANTIBIOTIC THERAPY
     Dosage: 300 mg, UNK
     Route: 048
     Dates: start: 20080223
  3. NITROFURANTOIN [Concomitant]
     Indication: URINARY TRACT INFECTION
     Dosage: 100 mg, UNK
     Route: 048
     Dates: start: 20080505
  4. MOTRIN [Concomitant]
     Indication: PAIN
     Dosage: 800 mg, One tab
     Route: 048
     Dates: start: 20080506, end: 20080514
  5. DILAUDID [Concomitant]
     Indication: PAIN
  6. TORADOL [Concomitant]
     Indication: PAIN
  7. MACROBID [Concomitant]
     Dosage: 100 mg, BID
  8. PROTONIX [Concomitant]
  9. ZOSYN [Concomitant]
     Indication: PYREXIA
  10. IBUPROFEN [Concomitant]
     Indication: PAIN
     Dosage: 800 mg, UNK
     Dates: start: 20080514
  11. NITROFURANTOIN [Concomitant]
     Indication: ANTIBIOTIC THERAPY
     Dosage: 100 mg, UNK
     Dates: start: 20080505
  12. VICODIN [Concomitant]
  13. AVELOX [Concomitant]
     Dosage: 400 mg, UNK
  14. RHINOCORT AQUA [Concomitant]
     Indication: NASAL CONGESTION
     Dosage: 32 mcg, UNK
     Route: 045
     Dates: start: 20080223

REACTIONS (8)
  - Pulmonary embolism [None]
  - Injury [None]
  - Pain [None]
  - Flank pain [None]
  - Dyspnoea [None]
  - Pyrexia [None]
  - Pleural effusion [None]
  - Mental disorder [None]
